FAERS Safety Report 6289193-1 (Version None)
Quarter: 2009Q3

REPORT INFORMATION
  Report Type: 
  Country: None (occurrence: None)
  Receive Date: 20090729
  Receipt Date: 20071121
  Transmission Date: 20100115
  Serious: Yes (Hospitalization, Disabling, Other)
  Sender: FDA-Public Use
  Company Number: US-ASTRAZENECA-2006UW18922

PATIENT
  Age: 17054 Day
  Sex: Female
  Weight: 65.3 kg

DRUGS (15)
  1. SEROQUEL [Suspect]
     Indication: SCHIZOPHRENIA
     Route: 048
     Dates: start: 20031229, end: 20061101
  2. SEROQUEL [Suspect]
     Indication: BIPOLAR DISORDER
     Route: 048
     Dates: start: 20031229, end: 20061101
  3. SEROQUEL [Suspect]
     Indication: DEPRESSION
     Route: 048
     Dates: start: 20031229, end: 20061101
  4. SEROQUEL [Suspect]
     Dosage: 25 MG - 200 MG
     Route: 048
     Dates: start: 20031229
  5. SEROQUEL [Suspect]
     Dosage: 25 MG - 200 MG
     Route: 048
     Dates: start: 20031229
  6. SEROQUEL [Suspect]
     Dosage: 25 MG - 200 MG
     Route: 048
     Dates: start: 20031229
  7. ATIVAN [Concomitant]
     Dates: start: 19900101, end: 20000101
  8. TOFRANIL [Concomitant]
     Dates: start: 19900101, end: 20000101
  9. EFFEXOR [Concomitant]
     Dosage: 75 MG - 150 MG
     Route: 048
     Dates: start: 20030830
  10. LORAZEPAM [Concomitant]
     Dosage: 1 MG - 2 MG
     Dates: start: 19980905
  11. IMIPRAMINE [Concomitant]
     Dosage: 25 MG - 50 MG
     Dates: start: 19981110
  12. WARFARIN SODIUM [Concomitant]
     Dosage: 5 MG - 7.5 MG
     Dates: start: 20040419
  13. PROPOXYPHENE HCL CAP [Concomitant]
     Dosage: 100 MG - 650 MG
     Dates: start: 20040422
  14. LIPITOR [Concomitant]
     Dates: start: 20060303
  15. GEODON [Concomitant]
     Dosage: 20 MG - 40 MG
     Dates: start: 20061106

REACTIONS (7)
  - CHOLECYSTECTOMY [None]
  - CHOLELITHIASIS [None]
  - GASTROSTOMY [None]
  - PANCREATIC PSEUDOCYST [None]
  - PANCREATITIS [None]
  - PANCREATITIS ACUTE [None]
  - PANCREATITIS CHRONIC [None]
